FAERS Safety Report 10610602 (Version 3)
Quarter: 2014Q4

REPORT INFORMATION
  Report Type: Spontaneous
  Country: JP (occurrence: JP)
  Receive Date: 20141126
  Receipt Date: 20141224
  Transmission Date: 20150529
  Serious: Yes (Other)
  Sender: FDA-Public Use
  Company Number: JP-PFIZER INC-2014323904

PATIENT
  Age: 66 Year
  Sex: Male

DRUGS (2)
  1. ANCARON [Suspect]
     Active Substance: AMIODARONE HYDROCHLORIDE
     Dosage: 150 MG, DAILY
     Route: 048
     Dates: start: 20120605
  2. ANCARON [Suspect]
     Active Substance: AMIODARONE HYDROCHLORIDE
     Indication: ARRHYTHMIA
     Dosage: 100 MG, 2X/DAY
     Route: 048
     Dates: start: 20100709, end: 20120604

REACTIONS (2)
  - Hyperthyroidism [Recovering/Resolving]
  - Thyroiditis [Recovering/Resolving]

NARRATIVE: CASE EVENT DATE: 2014
